FAERS Safety Report 20041316 (Version 6)
Quarter: 2021Q4

REPORT INFORMATION
  Report Type: Report from Study
  Country: US (occurrence: US)
  Receive Date: 20211107
  Receipt Date: 20211222
  Transmission Date: 20220304
  Serious: Yes (Hospitalization, Other)
  Sender: FDA-Public Use
  Company Number: US-JNJFOC-20211012594

PATIENT
  Age: 27 Year
  Sex: Female
  Weight: 80.9 kg

DRUGS (12)
  1. MACITENTAN [Suspect]
     Active Substance: MACITENTAN
     Indication: Pulmonary arterial hypertension
     Route: 048
     Dates: start: 20210809
  2. MACITENTAN [Suspect]
     Active Substance: MACITENTAN
     Indication: Pulmonary arterial hypertension
     Route: 048
  3. VELETRI [Suspect]
     Active Substance: EPOPROSTENOL
     Indication: Pulmonary arterial hypertension
     Dosage: 0.5 MG VIAL INTRAVENOUS CONTINUOUS, VELETRI DOSE 2 NG/KG/MIN
     Route: 042
  4. VELETRI [Suspect]
     Active Substance: EPOPROSTENOL
     Indication: Pulmonary arterial hypertension
     Route: 042
  5. VELETRI [Suspect]
     Active Substance: EPOPROSTENOL
     Route: 042
  6. VELETRI [Suspect]
     Active Substance: EPOPROSTENOL
     Route: 042
  7. VELETRI [Suspect]
     Active Substance: EPOPROSTENOL
     Route: 042
  8. VELETRI [Suspect]
     Active Substance: EPOPROSTENOL
     Route: 042
  9. VELETRI [Suspect]
     Active Substance: EPOPROSTENOL
     Route: 042
  10. VELETRI [Suspect]
     Active Substance: EPOPROSTENOL
     Route: 042
  11. CHLORHEXIDINE [Suspect]
     Active Substance: CHLORHEXIDINE
     Indication: Product used for unknown indication
     Route: 065
  12. TADALAFIL [Concomitant]
     Active Substance: TADALAFIL

REACTIONS (22)
  - Heart rate increased [Recovered/Resolved]
  - Therapy change [Unknown]
  - Catheter site vesicles [Unknown]
  - Catheter site rash [Unknown]
  - Hypersensitivity [Unknown]
  - Rash pruritic [Recovering/Resolving]
  - Pain [Unknown]
  - Feeling hot [Recovered/Resolved]
  - Pain in jaw [Recovering/Resolving]
  - Headache [Recovering/Resolving]
  - Nausea [Recovering/Resolving]
  - Infusion site pruritus [Recovering/Resolving]
  - Infusion site urticaria [Unknown]
  - Diarrhoea [Recovering/Resolving]
  - Arthralgia [Recovering/Resolving]
  - Complication associated with device [Unknown]
  - Catheter site haemorrhage [Unknown]
  - Catheter site erythema [Unknown]
  - Ill-defined disorder [Recovering/Resolving]
  - Catheter site irritation [Unknown]
  - Skin discharge [Unknown]
  - Malaise [Unknown]

NARRATIVE: CASE EVENT DATE: 20211001
